FAERS Safety Report 9981487 (Version 1)
Quarter: 2014Q1

REPORT INFORMATION
  Report Type: Spontaneous
  Country: US (occurrence: US)
  Receive Date: 20140307
  Receipt Date: 20140307
  Transmission Date: 20141002
  Serious: No
  Sender: FDA-Public Use
  Company Number: US-GLAXOSMITHKLINE-A1050443A

PATIENT
  Sex: Male

DRUGS (3)
  1. FABIOR [Suspect]
     Indication: ACNE
     Route: 061
  2. ACZONE [Concomitant]
  3. MONODOX [Concomitant]

REACTIONS (3)
  - Pruritus [Unknown]
  - Pain of skin [Unknown]
  - Skin reaction [Unknown]
